FAERS Safety Report 8538621-7 (Version None)
Quarter: 2012Q3

REPORT INFORMATION
  Report Type: 
  Country: None (occurrence: None)
  Receive Date: 20120718
  Receipt Date: 20120718
  Transmission Date: 20120928
  Serious: Yes (Death, Disabling)
  Sender: FDA-Public Use
  Company Number: None

PATIENT
  Age: 80 Year
  Sex: Male
  Weight: 117.9352 kg

DRUGS (1)
  1. LEVOFLOXACIN [Suspect]
     Indication: LUNG DISORDER
     Dosage: ONE DAY
     Dates: start: 20120501, end: 20120504

REACTIONS (2)
  - GAIT DISTURBANCE [None]
  - TENDON DISORDER [None]
